FAERS Safety Report 7580368-8 (Version None)
Quarter: 2011Q2

REPORT INFORMATION
  Report Type: 
  Country: None (occurrence: None)
  Receive Date: 20110629
  Receipt Date: 20110621
  Transmission Date: 20111010
  Serious: Yes (Hospitalization)
  Sender: FDA-Public Use
  Company Number: US-ROCHE-785328

PATIENT
  Sex: Male
  Weight: 88.4 kg

DRUGS (4)
  1. BEVACIZUMAB [Suspect]
     Indication: PROSTATE CANCER METASTATIC
     Dosage: CYCLE 21 DAYS; OVER 30-90 MINUTE ON DAY 1. LAST ADMINISTERED DATE: 28 MARCH 2011.TOTAL DOSE:1300MG.
     Route: 042
     Dates: start: 20110329
  2. PREDNISONE [Suspect]
     Indication: PROSTATE CANCER METASTATIC
     Dosage: CYCLE 21 DAYS; TOTAL DOSE: 170 MG.
     Route: 048
     Dates: start: 20110329
  3. DOCETAXEL [Suspect]
     Indication: PROSTATE CANCER METASTATIC
     Dosage: CYCLE 21 DAYS; OVER 60 MINUTE ON DAY 1. TOTAL DOSE:156MG.
     Route: 042
     Dates: start: 20110329
  4. LENALIDOMIDE [Suspect]
     Indication: PROSTATE CANCER METASTATIC
     Dosage: CYCLE 21 DAYS; ON DAYS 1-14. TOTAL DOSE:350MG.
     Route: 048
     Dates: start: 20110329

REACTIONS (3)
  - DEHYDRATION [None]
  - PRESYNCOPE [None]
  - ANGINA PECTORIS [None]
